FAERS Safety Report 20638262 (Version 1)
Quarter: 2022Q1

REPORT INFORMATION
  Report Type: Spontaneous
  Country: CH (occurrence: CH)
  Receive Date: 20220325
  Receipt Date: 20220325
  Transmission Date: 20220424
  Serious: Yes (Other)
  Sender: FDA-Public Use
  Company Number: CH-BRISTOL-MYERS SQUIBB COMPANY-BMS-2022-030744

PATIENT
  Sex: Male
  Weight: 56 kg

DRUGS (4)
  1. ELIQUIS [Suspect]
     Active Substance: APIXABAN
     Indication: Cerebrovascular accident prophylaxis
     Dosage: 5 MILLIGRAM, BID
     Route: 065
     Dates: start: 201909
  2. AMLODIPINE MESYLATE [Concomitant]
     Active Substance: AMLODIPINE MESYLATE
     Indication: Product used for unknown indication
     Dosage: 5 MG/DAY
     Route: 065
  3. VALSARTAN [Concomitant]
     Active Substance: VALSARTAN
     Indication: Product used for unknown indication
     Dosage: 160 MG/DAY
     Route: 065
  4. TORASEMIDE [TORASEMIDE SODIUM] [Concomitant]
     Indication: Blood pressure measurement
     Dosage: 5 MILLIGRAM, BID
     Route: 065

REACTIONS (6)
  - Haemorrhagic diathesis [Unknown]
  - Renal impairment [Unknown]
  - Accident [Unknown]
  - Wound infection [Unknown]
  - Skin laceration [Unknown]
  - Haematoma [Unknown]
